FAERS Safety Report 17347300 (Version 4)
Quarter: 2021Q1

REPORT INFORMATION
  Report Type: Spontaneous
  Country: HU (occurrence: HU)
  Receive Date: 20200130
  Receipt Date: 20210118
  Transmission Date: 20210419
  Serious: Yes (Death, Life-Threatening, Hospitalization, Other)
  Sender: FDA-Public Use
  Company Number: HU-TEVA-2020-HU-1172352

PATIENT
  Age: 37 Year
  Sex: Female

DRUGS (8)
  1. VALPROIC ACID. [Interacting]
     Active Substance: VALPROIC ACID
     Indication: EPILEPSY
     Dosage: INITIAL DOSE NOT STATED
     Route: 065
  2. EPITRIGINE [Interacting]
     Active Substance: LAMOTRIGINE
     Dosage: 25 MILLIGRAM DAILY;
     Route: 048
  3. CARBAPENEM [Suspect]
     Active Substance: UNSPECIFIED INGREDIENT
     Route: 065
  4. LEVETIRACETAM. [Suspect]
     Active Substance: LEVETIRACETAM
     Route: 065
  5. VALPROATE [Interacting]
     Active Substance: VALPROIC ACID
     Indication: EPILEPSY
     Route: 065
  6. EPITRIGINE [Suspect]
     Active Substance: LAMOTRIGINE
     Indication: EPILEPSY
     Dosage: 12.5 MILLIGRAM DAILY; TITRATING UPWARDS FROM A LOW DOSE
     Route: 048
     Dates: start: 201802
  7. VALPROIC ACID. [Interacting]
     Active Substance: VALPROIC ACID
     Dosage: 1050 MILLIGRAM DAILY; 450MG IN THE MORNING AND 600MG IN THE EVENING
     Route: 065
  8. VANCOMYCIN [Suspect]
     Active Substance: VANCOMYCIN
     Route: 065

REACTIONS (9)
  - Acute respiratory distress syndrome [Unknown]
  - Renal impairment [Unknown]
  - Sepsis [Fatal]
  - Respiratory failure [Unknown]
  - Toxic epidermal necrolysis [Fatal]
  - Multiple organ dysfunction syndrome [Fatal]
  - Atrial fibrillation [Unknown]
  - Drug interaction [Fatal]
  - Pancytopenia [Unknown]

NARRATIVE: CASE EVENT DATE: 2018
